FAERS Safety Report 10095473 (Version 2)
Quarter: 2014Q2

REPORT INFORMATION
  Report Type: Spontaneous
  Country: BR (occurrence: BR)
  Receive Date: 20140422
  Receipt Date: 20140424
  Transmission Date: 20141212
  Serious: Yes (Hospitalization)
  Sender: FDA-Public Use
  Company Number: BR-PFIZER INC-2014109235

PATIENT
  Age: 68 Year
  Sex: Male
  Weight: 80 kg

DRUGS (1)
  1. CELEBRA [Suspect]
     Indication: ARTHRALGIA
     Dosage: 1 TABLET OF STRENGTH 200 MG, DAILY, CONTINUOUS USE
     Route: 048

REACTIONS (1)
  - Gingival erosion [Unknown]
